FAERS Safety Report 21682764 (Version 1)
Quarter: 2022Q4

REPORT INFORMATION
  Report Type: Spontaneous
  Country: US (occurrence: None)
  Receive Date: 20221202
  Receipt Date: 20221202
  Transmission Date: 20230112
  Serious: Yes (Life-Threatening, Hospitalization, Disabling, Other)
  Sender: FDA-Public Use
  Company Number: None

PATIENT
  Age: 19 Year
  Sex: Female
  Weight: 58.97 kg

DRUGS (3)
  1. MIRENA [Suspect]
     Active Substance: LEVONORGESTREL
     Dates: end: 20210701
  2. FIBER [Concomitant]
     Active Substance: PSYLLIUM HUSK
  3. VITAMINS [Concomitant]
     Active Substance: VITAMINS

REACTIONS (4)
  - Device dislocation [None]
  - Ocular icterus [None]
  - Renal disorder [None]
  - Blood bilirubin increased [None]

NARRATIVE: CASE EVENT DATE: 20220401
